FAERS Safety Report 8241842-4 (Version None)
Quarter: 2012Q1

REPORT INFORMATION
  Report Type: 
  Country: None (occurrence: None)
  Receive Date: 20120328
  Receipt Date: 20120316
  Transmission Date: 20120608
  Serious: Yes (Hospitalization, Other)
  Sender: FDA-Public Use
  Company Number: US-ELI_LILLY_AND_COMPANY-US201103000659

PATIENT
  Sex: Female

DRUGS (29)
  1. CYMBALTA [Suspect]
     Dosage: 120 MG, QD
  2. ZOFRAN [Concomitant]
     Dosage: UNK, OTHER
  3. COREG [Concomitant]
     Dosage: 125 MG, OTHER
  4. NEURONTIN [Concomitant]
     Indication: NERVE INJURY
  5. LISINOPRIL [Concomitant]
     Dosage: 20 MG, QD
  6. FLEXERIL [Concomitant]
     Indication: MUSCLE SPASMS
  7. FORTEO [Suspect]
     Dosage: 20 UG, QD
  8. FENTANYL [Concomitant]
     Indication: BACK PAIN
     Dosage: 50 UG, UNKNOWN
  9. XANAX [Concomitant]
     Dosage: 1 MG, TID
  10. OXYBUTYNIN [Concomitant]
     Dosage: 5 MG, QD
  11. PHENERGAN HCL [Concomitant]
     Indication: VOMITING
  12. ASPIRIN [Concomitant]
  13. VYTORIN [Concomitant]
     Indication: BLOOD CHOLESTEROL
     Dosage: 40 MG, QD
  14. XANAX [Concomitant]
     Indication: ANXIETY
     Dosage: 1 MG, PRN
  15. ACTOS [Concomitant]
     Indication: DIABETES MELLITUS
  16. OXYCONTIN [Concomitant]
  17. FORTEO [Suspect]
     Dosage: 20 UG, QD
  18. SINGULAIR [Concomitant]
     Indication: ASTHMA
     Dosage: UNK, OTHER
  19. OXYCODONE HCL [Concomitant]
     Indication: BREAKTHROUGH PAIN
     Dosage: 30 MG, OTHER
  20. VITAMIN D [Concomitant]
  21. LISINOPRIL [Concomitant]
     Dosage: 40 MG, QD
  22. MECLIZINE [Concomitant]
     Indication: DIZZINESS
  23. FORTEO [Suspect]
     Indication: OSTEOPOROSIS
     Dosage: 20 UG, QD
  24. CYMBALTA [Suspect]
     Indication: DEPRESSION
     Dosage: 120 MG, QD
     Dates: start: 20110501
  25. DICLOFENAC SODIUM [Concomitant]
     Indication: ARTHRITIS
     Dosage: 100 MG, OTHER
  26. CALCIUM CARBONATE [Concomitant]
     Dosage: UNK, QD
  27. MORPHINE [Concomitant]
  28. VITAMIN D [Concomitant]
  29. PROTONIX [Concomitant]
     Indication: ABDOMINAL DISCOMFORT
     Dosage: 40 MG, QD

REACTIONS (21)
  - HOSPITALISATION [None]
  - ANXIETY [None]
  - VOMITING [None]
  - LOSS OF CONSCIOUSNESS [None]
  - BLOOD PRESSURE DECREASED [None]
  - SINUSITIS [None]
  - INFLUENZA [None]
  - VERTIGO [None]
  - MUSCLE SPASMS [None]
  - DIARRHOEA [None]
  - CONFUSIONAL STATE [None]
  - HYPERSENSITIVITY [None]
  - ASTHENIA [None]
  - MALAISE [None]
  - MOVEMENT DISORDER [None]
  - WEIGHT INCREASED [None]
  - INJECTION SITE PAIN [None]
  - PAIN [None]
  - PYREXIA [None]
  - ASTHMA [None]
  - DIZZINESS [None]
